FAERS Safety Report 8093773-0 (Version None)
Quarter: 2012Q1

REPORT INFORMATION
  Report Type: 
  Country: None (occurrence: None)
  Receive Date: 20120131
  Receipt Date: 20120125
  Transmission Date: 20120608
  Serious: Yes (Hospitalization)
  Sender: FDA-Public Use
  Company Number: US-AMGEN-USASP2012005272

PATIENT
  Age: 60 Year
  Sex: Female

DRUGS (1)
  1. ENBREL [Suspect]
     Indication: RHEUMATOID ARTHRITIS
     Dosage: 50 MG, QWK
     Dates: start: 20110813

REACTIONS (10)
  - TREMOR [None]
  - DIZZINESS [None]
  - MUSCLE SPASMS [None]
  - SPLENOMEGALY [None]
  - ERYTHEMA [None]
  - DIARRHOEA [None]
  - LIVER DISORDER [None]
  - ABDOMINAL PAIN UPPER [None]
  - EYE SWELLING [None]
  - OROPHARYNGEAL PAIN [None]
